FAERS Safety Report 6519500 (Version 4)
Quarter: 2015Q4

REPORT INFORMATION
  Report Type: Report from Study
  Country: US (occurrence: US)
  Receive Date: 20080104
  Receipt Date: 20151028
  Transmission Date: 20160305
  Serious: Yes (Hospitalization, Other)
  Sender: FDA-Public Use
  Company Number: US-AMGEN-QUU258065

PATIENT
  Age: 46 Year
  Sex: Male
  Weight: 90.75 kg

DRUGS (2)
  1. HUMIRA [Concomitant]
     Active Substance: ADALIMUMAB
  2. ENBREL [Suspect]
     Active Substance: ETANERCEPT
     Indication: ANKYLOSING SPONDYLITIS
     Dosage: 50 MG, QWK
     Route: 058
     Dates: start: 20040329

REACTIONS (8)
  - Arthralgia [Not Recovered/Not Resolved]
  - Colonoscopy abnormal [Unknown]
  - Gastrointestinal inflammation [Unknown]
  - Joint swelling [Not Recovered/Not Resolved]
  - Joint stabilisation [Unknown]
  - Haematochezia [Not Recovered/Not Resolved]
  - Dyspepsia [Not Recovered/Not Resolved]
  - Reiter^s syndrome [Unknown]

NARRATIVE: CASE EVENT DATE: 200602
